FAERS Safety Report 5256325-3 (Version None)
Quarter: 2007Q1

REPORT INFORMATION
  Report Type: 
  Country: None (occurrence: None)
  Receive Date: 20070306
  Receipt Date: 20070221
  Transmission Date: 20070707
  Serious: Yes (Life-Threatening)
  Sender: FDA-Public Use
  Company Number: JP-PFIZER INC-2007011669

PATIENT
  Sex: Male

DRUGS (15)
  1. ZYVOX [Suspect]
     Indication: PNEUMONIA STAPHYLOCOCCAL
     Route: 042
     Dates: start: 20070207, end: 20070208
  2. VANCOMYCIN HYDROCHLORIDE [Concomitant]
     Indication: DIARRHOEA
     Dosage: DAILY DOSE:2GRAM
     Route: 042
     Dates: start: 20070117, end: 20070126
  3. VANCOMYCIN HYDROCHLORIDE [Concomitant]
     Indication: PSEUDOMEMBRANOUS COLITIS
  4. ARBEKACIN SULFATE [Concomitant]
     Route: 042
     Dates: start: 20070126, end: 20070206
  5. RIVOTRIL [Concomitant]
     Route: 048
     Dates: start: 20070112
  6. ALUMINIUM HYDR GEL W/MAGNESIUM HYDROXIDE [Concomitant]
     Indication: GASTROINTESTINAL HAEMORRHAGE
     Route: 048
  7. TPN [Concomitant]
  8. NATEGLINIDE [Concomitant]
     Indication: DIABETES MELLITUS
     Route: 048
     Dates: start: 20070116
  9. BASEN [Concomitant]
     Indication: DIABETES MELLITUS
     Route: 048
  10. TAKEPRON [Concomitant]
     Indication: GASTROINTESTINAL HAEMORRHAGE
     Route: 048
     Dates: start: 20070111
  11. ENALAPRIL MALEATE [Concomitant]
     Indication: HYPERTENSION
     Route: 048
     Dates: start: 20070112
  12. NORVASC [Concomitant]
     Indication: HYPERTENSION
     Route: 048
     Dates: start: 20070124
  13. CIPROFLOXACIN [Concomitant]
     Route: 042
     Dates: start: 20070119, end: 20070126
  14. MEROPEN [Concomitant]
     Route: 042
     Dates: start: 20070126, end: 20070206
  15. ALL OTHER THERAPEUTIC PRODUCTS [Concomitant]
     Indication: DIARRHOEA
     Route: 048
     Dates: start: 20070201

REACTIONS (3)
  - BLOOD CREATINE PHOSPHOKINASE INCREASED [None]
  - HEPATIC FUNCTION ABNORMAL [None]
  - MYOCLONIC EPILEPSY [None]
